FAERS Safety Report 22332607 (Version 1)
Quarter: 2023Q2

REPORT INFORMATION
  Report Type: Spontaneous
  Country: CN (occurrence: CN)
  Receive Date: 20230517
  Receipt Date: 20230517
  Transmission Date: 20230722
  Serious: Yes (Hospitalization)
  Sender: FDA-Public Use
  Company Number: CN-Merck Healthcare KGaA-9401228

PATIENT
  Age: 72 Year
  Sex: Male
  Weight: 49 kg

DRUGS (4)
  1. ERBITUX [Suspect]
     Active Substance: CETUXIMAB
     Indication: Adenocarcinoma of colon
     Dosage: 100 MG, DAILY
     Route: 041
     Dates: start: 20230330, end: 20230330
  2. ERBITUX [Suspect]
     Active Substance: CETUXIMAB
     Dosage: 600 MG, DAILY
     Route: 041
     Dates: start: 20230330, end: 20230330
  3. IRINOTECAN HYDROCHLORIDE [Suspect]
     Active Substance: IRINOTECAN HYDROCHLORIDE
     Indication: Adenocarcinoma of colon
     Dosage: 240 MG, DAILY
     Route: 041
     Dates: start: 20230330, end: 20230330
  4. IRINOTECAN HYDROCHLORIDE [Suspect]
     Active Substance: IRINOTECAN HYDROCHLORIDE
     Dosage: 200 MG, DAILY
     Route: 041
     Dates: start: 20230330, end: 20230330

REACTIONS (2)
  - Granulocyte count decreased [Recovered/Resolved]
  - White blood cell count decreased [Recovered/Resolved]

NARRATIVE: CASE EVENT DATE: 20230415
